FAERS Safety Report 13359542 (Version 1)
Quarter: 2017Q1

REPORT INFORMATION
  Report Type: Spontaneous
  Country: FR (occurrence: FR)
  Receive Date: 20170322
  Receipt Date: 20170322
  Transmission Date: 20170429
  Serious: Yes (Life-Threatening, Hospitalization)
  Sender: FDA-Public Use
  Company Number: FR-FRESENIUS KABI-FK201702274

PATIENT
  Sex: Female

DRUGS (4)
  1. LIDOCAINE AGUETTANT [Suspect]
     Active Substance: LIDOCAINE
     Indication: PRODUCT USED FOR UNKNOWN INDICATION
     Dates: start: 20170206, end: 20170206
  2. NOREPINEPHRINE. [Concomitant]
     Indication: PRODUCT USED FOR UNKNOWN INDICATION
  3. AMOXICILLIN PANPHARMA [Suspect]
     Active Substance: AMOXICILLIN
     Indication: PRODUCT USED FOR UNKNOWN INDICATION
     Dates: start: 20170206, end: 20170206
  4. ROPIVACAINHYDROCHLORID KABI 10 MG / ML [Suspect]
     Active Substance: ROPIVACAINE HYDROCHLORIDE
     Indication: PRODUCT USED FOR UNKNOWN INDICATION
     Route: 042
     Dates: start: 20170206, end: 20170206

REACTIONS (3)
  - Exposure during pregnancy [Unknown]
  - Anaphylactic shock [Recovered/Resolved]
  - Foetal distress syndrome [Unknown]
